FAERS Safety Report 8317127-4 (Version None)
Quarter: 2012Q2

REPORT INFORMATION
  Report Type: 
  Country: None (occurrence: None)
  Receive Date: 20120427
  Receipt Date: 20120420
  Transmission Date: 20120825
  Serious: No
  Sender: FDA-Public Use
  Company Number: US-PFIZER INC-2012084879

PATIENT
  Sex: Female

DRUGS (13)
  1. POTASSIUM PENICILLIN G [Suspect]
     Dosage: UNK
  2. CIPRO [Suspect]
  3. LIPITOR [Suspect]
     Dosage: UNK
  4. ZOCOR [Suspect]
     Dosage: UNK
  5. NEOSPORIN [Suspect]
     Dosage: UNK
  6. MACRODANTIN [Suspect]
     Dosage: UNK
  7. MINOCIN [Suspect]
     Dosage: UNK
  8. IODINE [Suspect]
     Dosage: UNK
  9. GENTAMICIN [Suspect]
     Dosage: UNK
  10. NEOMYCIN SULFATE [Suspect]
     Dosage: UNK
  11. CELEBREX [Suspect]
     Dosage: UNK
  12. PAMELOR [Suspect]
     Dosage: UNK
  13. OXSORALEN [Suspect]
     Dosage: UNK

REACTIONS (1)
  - DRUG HYPERSENSITIVITY [None]
